FAERS Safety Report 6909231-X (Version None)
Quarter: 2010Q3

REPORT INFORMATION
  Report Type: 
  Country: None (occurrence: None)
  Receive Date: 20100805
  Receipt Date: 20100728
  Transmission Date: 20110219
  Serious: Yes (Hospitalization)
  Sender: FDA-Public Use
  Company Number: US-GENENTECH-304766

PATIENT
  Sex: Male

DRUGS (3)
  1. RITUXAN [Suspect]
     Indication: PRODUCT USED FOR UNKNOWN INDICATION
     Dosage: 500 MG, UNK
  2. RITUXAN [Suspect]
     Dosage: 100 MG, UNK
  3. RITUXAN [Suspect]
     Dosage: 100 MG, UNK

REACTIONS (1)
  - ADVERSE DRUG REACTION [None]
